FAERS Safety Report 10890176 (Version 2)
Quarter: 2015Q1

REPORT INFORMATION
  Report Type: Spontaneous
  Country: DE (occurrence: DE)
  Receive Date: 20150305
  Receipt Date: 20150318
  Transmission Date: 20150721
  Serious: Yes (Other)
  Sender: FDA-Public Use
  Company Number: DE-AMGEN-DEUSP2015018658

PATIENT
  Age: 82 Year
  Sex: Female
  Weight: 55 kg

DRUGS (8)
  1. MARCUMAR [Concomitant]
     Active Substance: PHENPROCOUMON
     Dosage: UNK, ACCORDING TO SCHEDULE
     Dates: start: 2004
  2. KH3 [Concomitant]
     Dosage: UNK, QD
  3. ANGOCIN ANTI INFEKT N [Concomitant]
     Dosage: UNK, TID
     Dates: start: 2013
  4. PROLIA [Suspect]
     Active Substance: DENOSUMAB
     Indication: OSTEOPOROSIS
     Dosage: 60 MG, Q6MO
     Route: 065
     Dates: start: 20131228
  5. EUNOVA MAGNESIUM [Concomitant]
     Dosage: UNK, QD
  6. CRALONIN [Concomitant]
     Dosage: 10 DROPS, TID
     Dates: start: 2013
  7. CRATAEGUS                          /01349301/ [Concomitant]
     Dosage: UNK, BID
     Dates: start: 2011
  8. WOBENZYM N                         /00300601/ [Concomitant]
     Dosage: UNK, QD

REACTIONS (11)
  - Epistaxis [Recovered/Resolved]
  - Balance disorder [Unknown]
  - Renal pain [Unknown]
  - Gait disturbance [Not Recovered/Not Resolved]
  - Oropharyngeal pain [Recovered/Resolved]
  - Haematotympanum [Not Recovered/Not Resolved]
  - Dysuria [Not Recovered/Not Resolved]
  - Ear haemorrhage [Not Recovered/Not Resolved]
  - Urinary tract inflammation [Not Recovered/Not Resolved]
  - Ear pain [Not Recovered/Not Resolved]
  - Pain in extremity [Not Recovered/Not Resolved]

NARRATIVE: CASE EVENT DATE: 201405
